FAERS Safety Report 4926120-0 (Version None)
Quarter: 2006Q1

REPORT INFORMATION
  Report Type: 
  Country: None (occurrence: None)
  Receive Date: 20060228
  Receipt Date: 20050822
  Transmission Date: 20060701
  Serious: No
  Sender: FDA-Public Use
  Company Number: US-GLAXOSMITHKLINE-A0571251A

PATIENT
  Age: 42 Year
  Sex: Male

DRUGS (7)
  1. LAMICTAL [Suspect]
     Indication: BIPOLAR DISORDER
     Dosage: 50MG THREE TIMES PER DAY
     Route: 048
     Dates: start: 20020101
  2. GLUCOPHAGE [Concomitant]
  3. LISINOPRIL [Concomitant]
  4. GLYBURIDE [Concomitant]
  5. LIPITOR [Concomitant]
  6. ASPIRIN [Concomitant]
  7. TRAZODONE [Concomitant]

REACTIONS (3)
  - DIZZINESS [None]
  - NYSTAGMUS [None]
  - VERTIGO [None]
